FAERS Safety Report 9234093 (Version 2)
Quarter: 2013Q2

REPORT INFORMATION
  Report Type: Spontaneous
  Country: FR (occurrence: FR)
  Receive Date: 20130416
  Receipt Date: 20130419
  Transmission Date: 20140414
  Serious: Yes (Other)
  Sender: FDA-Public Use
  Company Number: FR-PFIZER INC-2013020109

PATIENT
  Age: 43 Year
  Sex: Female
  Weight: 75 kg

DRUGS (5)
  1. LYRICA [Suspect]
     Indication: NEURALGIA
     Dosage: 600 MG, 2X/DAY IN MORNING AND IN EVENING
     Dates: start: 20130111
  2. ZOPICLONE [Suspect]
     Indication: SLEEP DISORDER
     Dosage: 11 MG, 1X/DAY
     Route: 048
     Dates: start: 20130111
  3. LAMALINE [Suspect]
     Indication: PAIN
     Dosage: 6 TIMES DAILY
     Route: 048
     Dates: start: 20130111
  4. SERESTA [Suspect]
     Indication: ANXIOLYTIC THERAPY
     Dosage: 20 MG, 1X/DAY
     Route: 048
     Dates: start: 20130111
  5. CITALOPRAM [Suspect]
     Indication: ANTIDEPRESSANT THERAPY
     Dosage: 20 MG, 1X/DAY
     Route: 048
     Dates: start: 20130111

REACTIONS (4)
  - Drug abuse [Unknown]
  - Dependence [Unknown]
  - Off label use [Unknown]
  - Drug ineffective [Unknown]
